FAERS Safety Report 6520187-4 (Version None)
Quarter: 2009Q4

REPORT INFORMATION
  Report Type: 
  Country: None (occurrence: None)
  Receive Date: 20091229
  Receipt Date: 20091211
  Transmission Date: 20100525
  Serious: Yes (Hospitalization, Disabling, Other)
  Sender: FDA-Public Use
  Company Number: GR-BAYER-GR-2005-005965

PATIENT
  Age: 63 Year
  Sex: Male
  Weight: 50 kg

DRUGS (7)
  1. CAMPATH [Suspect]
     Indication: CHRONIC LYMPHOCYTIC LEUKAEMIA
     Dosage: UNIT DOSE: 30 MG
     Route: 042
     Dates: start: 20050126, end: 20050310
  2. FLUDARABINE PHOSPHATE [Suspect]
     Indication: CHRONIC LYMPHOCYTIC LEUKAEMIA
     Dosage: 30 MG/M2, CYCLES
     Route: 042
     Dates: start: 20050201, end: 20050310
  3. ACICLOVIR [Concomitant]
     Indication: INFECTION PROPHYLAXIS
     Dosage: UNIT DOSE: 800 MG
     Route: 042
     Dates: start: 20050324, end: 20050405
  4. ACICLOVIR [Concomitant]
     Dosage: UNIT DOSE: 400 MG
  5. ACICLOVIR [Concomitant]
     Dosage: UNIT DOSE: 400 MG
     Dates: start: 20050406
  6. SULFAMETHOXAZOLE AND TRIMETHOPRIM [Concomitant]
     Indication: INFECTION PROPHYLAXIS
     Dosage: UNK, UNK
     Route: 048
  7. SULFAMETHOXAZOLE AND TRIMETHOPRIM [Concomitant]
     Dosage: UNK, UNK
     Route: 048
     Dates: start: 20050405

REACTIONS (1)
  - CHRONIC LYMPHOCYTIC LEUKAEMIA TRANSFORMATION [None]
